FAERS Safety Report 9632273 (Version 1)
Quarter: 2013Q4

REPORT INFORMATION
  Report Type: Report from Study
  Country: AR (occurrence: AR)
  Receive Date: 20131018
  Receipt Date: 20131018
  Transmission Date: 20140711
  Serious: Yes (Hospitalization)
  Sender: FDA-Public Use
  Company Number: PHHY2013AR117592

PATIENT
  Age: 84 Year
  Sex: Female

DRUGS (1)
  1. EXELON PATCH [Suspect]
     Indication: SENILE DEMENTIA
     Dosage: 4.6 MG, DAILY
     Route: 062

REACTIONS (2)
  - Femur fracture [Recovering/Resolving]
  - Fall [Recovering/Resolving]
